FAERS Safety Report 12712832 (Version 2)
Quarter: 2017Q1

REPORT INFORMATION
  Report Type: Spontaneous
  Country: US (occurrence: US)
  Receive Date: 20160902
  Receipt Date: 20170221
  Transmission Date: 20170428
  Serious: Yes (Hospitalization, Other)
  Sender: FDA-Public Use
  Company Number: US-MALLINCKRODT-T201603971

PATIENT
  Age: 60 Year
  Sex: Female
  Weight: 63 kg

DRUGS (13)
  1. PRILOSEC [Concomitant]
     Active Substance: OMEPRAZOLE MAGNESIUM
     Dosage: 40 MG, EVERY MORNING
     Route: 048
  2. GABLOFEN [Suspect]
     Active Substance: BACLOFEN
     Indication: MUSCLE SPASTICITY
     Dosage: 150 ?G, QD
     Route: 037
  3. ULTRAM [Concomitant]
     Active Substance: TRAMADOL HYDROCHLORIDE
     Dosage: 50 MG, BID PRN
     Route: 048
  4. BACLOFEN. [Concomitant]
     Active Substance: BACLOFEN
     Dosage: 10 MG, TID
     Route: 048
  5. BOTOX [Concomitant]
     Active Substance: ONABOTULINUMTOXINA
     Indication: OESOPHAGEAL SPASM
  6. GABLOFEN [Suspect]
     Active Substance: BACLOFEN
     Dosage: 165 ?G, QD
     Dates: start: 20160121
  7. DULCOLAX NOS [Concomitant]
     Active Substance: BISACODYL OR DOCUSATE SODIUM
     Dosage: 10 MG, PRN
     Route: 054
  8. DEPAKOTE [Concomitant]
     Active Substance: DIVALPROEX SODIUM
     Dosage: 500 MG, BID
     Route: 048
  9. COLACE [Concomitant]
     Active Substance: DOCUSATE SODIUM
     Dosage: 100 MG
     Route: 048
  10. NEURONTIN [Concomitant]
     Active Substance: GABAPENTIN
     Dosage: 300 MG, 2 CAPSULES, BID
     Route: 048
  11. MIRAPEX [Concomitant]
     Active Substance: PRAMIPEXOLE DIHYDROCHLORIDE
     Dosage: 0.5 MG, BID
     Route: 048
  12. LINACLOTIDE [Concomitant]
     Active Substance: LINACLOTIDE
     Dosage: 145 MCG, QAM
     Route: 048
  13. COZAAR [Concomitant]
     Active Substance: LOSARTAN POTASSIUM
     Dosage: 50 MG, QD
     Route: 048

REACTIONS (6)
  - Muscular weakness [Unknown]
  - Urinary tract infection [Recovered/Resolved]
  - Bipolar disorder [Recovered/Resolved]
  - Dysphagia [Unknown]
  - Oesophageal spasm [Unknown]
  - Muscle spasticity [Recovered/Resolved]

NARRATIVE: CASE EVENT DATE: 2016
